FAERS Safety Report 4732881-6 (Version None)
Quarter: 2005Q3

REPORT INFORMATION
  Report Type: 
  Country: None (occurrence: None)
  Receive Date: 20050803
  Receipt Date: 20050425
  Transmission Date: 20060218
  Serious: No
  Sender: FDA-Public Use
  Company Number: US-GLAXOSMITHKLINE-A0555597A

PATIENT
  Age: 48 Year
  Sex: Male

DRUGS (3)
  1. AVANDAMET [Suspect]
     Dosage: 2MG FIVE TIMES PER DAY
     Route: 048
  2. GLUCOTROL XL [Concomitant]
  3. STARLIX [Concomitant]

REACTIONS (3)
  - OEDEMA [None]
  - OVERDOSE [None]
  - TREATMENT NONCOMPLIANCE [None]
